FAERS Safety Report 9059056 (Version 1)
Quarter: 2013Q1

REPORT INFORMATION
  Report Type: Spontaneous
  Country: US (occurrence: US)
  Receive Date: 20130211
  Receipt Date: 20130211
  Transmission Date: 20140127
  Serious: No
  Sender: FDA-Public Use
  Company Number: US-BRISTOL-MYERS SQUIBB COMPANY-16671026

PATIENT
  Age: 79 Year
  Sex: Female

DRUGS (1)
  1. GLUCOPHAGE [Suspect]
     Dosage: 3-MONTH SUPPLY:270 PILLS,PRESCRIPTION FILLED:22MAY2012?PRESCRIPTION# 718132

REACTIONS (2)
  - Local swelling [Unknown]
  - Visual impairment [Unknown]
